FAERS Safety Report 4972096-X (Version None)
Quarter: 2006Q2

REPORT INFORMATION
  Report Type: 
  Country: None (occurrence: None)
  Receive Date: 20060407
  Receipt Date: 20060403
  Transmission Date: 20061013
  Serious: Yes (Life-Threatening)
  Sender: FDA-Public Use
  Company Number: 2006S1000063

PATIENT
  Age: 4 Day
  Sex: Male

DRUGS (6)
  1. INOMAX [Suspect]
     Indication: LUNG DISORDER
     Dosage: 5 PPM CONT, INH
     Route: 055
     Dates: start: 20060330
  2. INOMAX [Suspect]
     Indication: PROPHYLAXIS
     Dosage: 5 PPM CONT, INH
     Route: 055
     Dates: start: 20060330
  3. PHYTONADIONE [Concomitant]
  4. AMPICILLIN SODIUM [Concomitant]
  5. GENTAMICIN [Concomitant]
  6. CUROSURF [Concomitant]

REACTIONS (1)
  - INTRAVENTRICULAR HAEMORRHAGE NEONATAL [None]
